FAERS Safety Report 4878490-X (Version None)
Quarter: 2006Q1

REPORT INFORMATION
  Report Type: 
  Country: None (occurrence: None)
  Receive Date: 20060110
  Receipt Date: 20060110
  Transmission Date: 20060701
  Serious: Yes (Hospitalization)
  Sender: FDA-Public Use
  Company Number: None

PATIENT
  Sex: Female
  Weight: 72 kg

DRUGS (6)
  1. RITUXIMAB-683 MG [Suspect]
     Indication: MANTLE CELL LYMPHOMA
     Dates: start: 20051213, end: 20051216
  2. BORTEZOMIB-2 [Suspect]
     Indication: MANTLE CELL LYMPHOMA
     Dates: start: 20051213, end: 20051216
  3. CYTOXAN [Suspect]
     Indication: MANTLE CELL LYMPHOMA
     Dates: start: 20051213, end: 20051216
  4. DOXORUBICIN - 45.5 MG [Suspect]
     Indication: MANTLE CELL LYMPHOMA
     Dates: start: 20051213, end: 20051216
  5. ACYCLOVIR [Concomitant]
  6. ALBUTEROL [Concomitant]

REACTIONS (11)
  - ABNORMAL BEHAVIOUR [None]
  - DEHYDRATION [None]
  - DYSARTHRIA [None]
  - ESCHERICHIA INFECTION [None]
  - FALL [None]
  - FEBRILE NEUTROPENIA [None]
  - LUNG INFECTION [None]
  - PALLOR [None]
  - SINUS DISORDER [None]
  - SPUTUM CULTURE POSITIVE [None]
  - URINARY TRACT INFECTION [None]
